FAERS Safety Report 7583048-8 (Version None)
Quarter: 2011Q2

REPORT INFORMATION
  Report Type: 
  Country: None (occurrence: None)
  Receive Date: 20110527
  Receipt Date: 20101007
  Transmission Date: 20111010
  Serious: Yes (Other)
  Sender: FDA-Public Use
  Company Number: US201002004005

PATIENT
  Age: 62 Year
  Sex: Female
  Weight: 111.6 kg

DRUGS (7)
  1. AMBIEN [Concomitant]
  2. DIAZEPAM [Concomitant]
  3. EXENATIDE PEN (EXENATIDE PEN) [Concomitant]
  4. ATENOLOL [Concomitant]
  5. ALPRAZOLAM [Concomitant]
  6. TYLENOL /00020001/ (PARACETAMOL) [Concomitant]
  7. BYETTA [Suspect]
     Dates: start: 20080901, end: 20090401

REACTIONS (6)
  - GASTROINTESTINAL DISORDER [None]
  - PANCREATITIS [None]
  - VOMITING [None]
  - NAUSEA [None]
  - BACK PAIN [None]
  - DIARRHOEA [None]
